FAERS Safety Report 7998048-3 (Version None)
Quarter: 2011Q4

REPORT INFORMATION
  Report Type: 
  Country: None (occurrence: None)
  Receive Date: 20111221
  Receipt Date: 20101210
  Transmission Date: 20120403
  Serious: No
  Sender: FDA-Public Use
  Company Number: US-GLAXOSMITHKLINE-A0899332A

PATIENT
  Age: 61 Year
  Sex: Male

DRUGS (5)
  1. UNSPECIFIED MEDICATION [Concomitant]
     Indication: GOUT
  2. PREDNISONE TAB [Concomitant]
  3. LOVAZA [Suspect]
     Indication: BLOOD TRIGLYCERIDES INCREASED
     Route: 048
     Dates: start: 20091201
  4. COZAAR [Concomitant]
  5. METHOTREXATE [Concomitant]

REACTIONS (2)
  - INFLUENZA LIKE ILLNESS [None]
  - BACK PAIN [None]
